FAERS Safety Report 8772177 (Version 2)
Quarter: 2012Q4

REPORT INFORMATION
  Report Type: 
  Country: US (occurrence: US)
  Receive Date: 20120904
  Receipt Date: 20120917
  Transmission Date: 20130627
  Serious: No
  Sender: FDA-Public Use
  Company Number: US-PFIZER INC-2012214309

PATIENT
  Sex: Male
  Weight: 72.56 kg

DRUGS (2)
  1. DILANTIN [Suspect]
     Indication: CONVULSION
     Dosage: 100 mg, 3x/day
     Dates: start: 1988
  2. LORAZEPAM [Concomitant]
     Indication: CONVULSION
     Dosage: 1mg half of it,as needed

REACTIONS (1)
  - No adverse event [Unknown]
